FAERS Safety Report 6537174-2 (Version None)
Quarter: 2010Q1

REPORT INFORMATION
  Report Type: 
  Country: None (occurrence: None)
  Receive Date: 20100114
  Receipt Date: 20100107
  Transmission Date: 20100710
  Serious: Yes (Disabling)
  Sender: FDA-Public Use
  Company Number: JP-SANOFI-AVENTIS-200912982JP

PATIENT
  Age: 28 Year
  Sex: Female

DRUGS (3)
  1. DOCETAXEL [Suspect]
     Indication: GASTRIC CANCER RECURRENT
     Route: 041
     Dates: start: 20080416, end: 20080416
  2. TS-1 [Concomitant]
     Indication: GASTRIC CANCER RECURRENT
     Dates: start: 20080101
  3. CISPLATIN [Concomitant]
     Indication: GASTRIC CANCER RECURRENT
     Dates: start: 20080101

REACTIONS (1)
  - DERMATOMYOSITIS [None]
